FAERS Safety Report 5431540-4 (Version None)
Quarter: 2007Q3

REPORT INFORMATION
  Report Type: 
  Country: None (occurrence: None)
  Receive Date: 20070828
  Receipt Date: 20070813
  Transmission Date: 20080115
  Serious: Yes (Hospitalization)
  Sender: FDA-Public Use
  Company Number: 236897K06USA

PATIENT
  Age: 29 Year
  Sex: Female
  Weight: 120.2032 kg

DRUGS (1)
  1. REBIF [Suspect]
     Indication: MULTIPLE SCLEROSIS
     Dosage: 44 MCG, 3 IN 1 WEEK, SUBCUTANEOUS
     Route: 058
     Dates: start: 20060128, end: 20060801

REACTIONS (7)
  - ASTHMA [None]
  - BIPOLAR DISORDER [None]
  - BRONCHITIS [None]
  - CONDITION AGGRAVATED [None]
  - DEPRESSION [None]
  - MULTIPLE DRUG OVERDOSE [None]
  - SUICIDE ATTEMPT [None]
